FAERS Safety Report 5604889-X (Version None)
Quarter: 2008Q1

REPORT INFORMATION
  Report Type: 
  Country: None (occurrence: None)
  Receive Date: 20080128
  Receipt Date: 20080117
  Transmission Date: 20080703
  Serious: Yes (Death)
  Sender: FDA-Public Use
  Company Number: US-PFIZER INC-2007101483

PATIENT
  Age: 55 Year
  Sex: Male
  Weight: 108.9 kg

DRUGS (17)
  1. VARENICLINE [Suspect]
     Indication: SMOKING CESSATION THERAPY
     Route: 048
     Dates: start: 20070605, end: 20070829
  2. ASPIRIN [Concomitant]
     Route: 048
  3. FIBERCON [Concomitant]
     Route: 048
  4. GLYBURIDE [Concomitant]
     Route: 048
  5. IBUPROFEN [Concomitant]
     Indication: PAIN
     Route: 048
  6. IBUPROFEN [Concomitant]
     Indication: INFLAMMATION
  7. INSULIN [Concomitant]
     Dosage: TEXT:100 UNIT/ML; USE 72 UNITS-FREQ:AT 9 PM EACH DAY OR AS DIRECTED
     Route: 058
  8. LOSARTAN POTASSIUM [Concomitant]
     Route: 048
  9. LOVASTATIN [Concomitant]
     Route: 048
  10. METFORMIN HCL [Concomitant]
     Route: 048
  11. METOPROLOL TARTRATE [Concomitant]
     Route: 048
  12. RANITIDINE [Concomitant]
     Indication: GASTROOESOPHAGEAL REFLUX DISEASE
     Route: 048
  13. SAW PALMETTO [Concomitant]
     Route: 048
  14. TRIAMTERENE [Concomitant]
     Dosage: TEXT:75MG-50MG; ONE HALF TABLET
     Route: 048
  15. HYDROCHLOROTHIAZIDE [Concomitant]
     Dosage: TEXT:75MG-50MG; ONE HALF TABLET
     Route: 048
  16. ASCORBIC ACID [Concomitant]
     Route: 048
  17. VARENICLINE TARTRATE [Concomitant]
     Indication: SMOKING CESSATION THERAPY
     Route: 048

REACTIONS (1)
  - CARDIAC DEATH [None]
